FAERS Safety Report 7646954-1 (Version None)
Quarter: 2011Q3

REPORT INFORMATION
  Report Type: 
  Country: None (occurrence: None)
  Receive Date: 20110801
  Receipt Date: 20110725
  Transmission Date: 20111222
  Serious: Yes (Hospitalization, Other)
  Sender: FDA-Public Use
  Company Number: US-BAYER-2011-000117

PATIENT
  Age: 18 Year
  Sex: Female
  Weight: 47.619 kg

DRUGS (5)
  1. AMPICILLIN TRIHYDRATE [Concomitant]
     Dosage: 500 MG, UNK
  2. RETIN-A MICRO [Concomitant]
     Dosage: 0.04 %, UNK
  3. SPIRONOLACTONE [Concomitant]
     Dosage: 50 MG, UNK
  4. YAZ [Suspect]
     Indication: CONTRACEPTION
     Dosage: UNK
     Dates: start: 20080101, end: 20090101
  5. YAZ [Suspect]
     Indication: ACNE

REACTIONS (5)
  - INJURY [None]
  - PULMONARY EMBOLISM [None]
  - EMOTIONAL DISTRESS [None]
  - PAIN [None]
  - ANXIETY [None]
